FAERS Safety Report 8332221-X (Version None)
Quarter: 2012Q2

REPORT INFORMATION
  Report Type: 
  Country: None (occurrence: None)
  Receive Date: 20120503
  Receipt Date: 20120423
  Transmission Date: 20120825
  Serious: No
  Sender: FDA-Public Use
  Company Number: US-BIOGENIDEC-2012BI014082

PATIENT
  Age: 45 Year
  Sex: Female

DRUGS (1)
  1. TYSABRI [Suspect]
     Indication: MULTIPLE SCLEROSIS
     Route: 042
     Dates: start: 20100413

REACTIONS (6)
  - HYPERSOMNIA [None]
  - HYPOAESTHESIA [None]
  - FATIGUE [None]
  - GAIT DISTURBANCE [None]
  - FALL [None]
  - PARAESTHESIA [None]
